FAERS Safety Report 7040499-8 (Version None)
Quarter: 2010Q4

REPORT INFORMATION
  Report Type: 
  Country: None (occurrence: None)
  Receive Date: 20101008
  Receipt Date: 20101008
  Transmission Date: 20110411
  Serious: Yes (Life-Threatening, Hospitalization)
  Sender: FDA-Public Use
  Company Number: None

PATIENT
  Age: 29 Year
  Sex: Female
  Weight: 47.6277 kg

DRUGS (3)
  1. CITALOPRAM HYDROBROMIDE [Suspect]
     Indication: FEELING HOT
     Dosage: 40  MG 1X A DAY.
     Dates: start: 20100909
  2. CITALOPRAM HYDROBROMIDE [Suspect]
     Indication: MOOD SWINGS
     Dosage: 40  MG 1X A DAY.
     Dates: start: 20100909
  3. CELEXA [Suspect]
     Dosage: TOOK ONE TIME

REACTIONS (2)
  - LOSS OF CONSCIOUSNESS [None]
  - THROAT TIGHTNESS [None]
